FAERS Safety Report 5149842-8 (Version None)
Quarter: 2006Q4

REPORT INFORMATION
  Report Type: 
  Country: None (occurrence: None)
  Receive Date: 20061108
  Receipt Date: 20060913
  Transmission Date: 20070319
  Serious: Yes (Other)
  Sender: FDA-Public Use
  Company Number: 2006113630

PATIENT
  Age: 73 Year
  Sex: Male
  Weight: 68.0396 kg

DRUGS (1)
  1. XALATAN [Suspect]
     Indication: PIGMENTARY GLAUCOMA
     Dosage: 2 IN 1 DAY, INTRAOCULAR, MORE THAN 10 YEARS
     Route: 031

REACTIONS (4)
  - DIPLOPIA [None]
  - PIGMENTATION DISORDER [None]
  - VISION BLURRED [None]
  - VISUAL DISTURBANCE [None]
